FAERS Safety Report 7868786-1 (Version None)
Quarter: 2011Q4

REPORT INFORMATION
  Report Type: 
  Country: None (occurrence: None)
  Receive Date: 20111026
  Receipt Date: 20111026
  Transmission Date: 20120403
  Serious: Yes (Hospitalization)
  Sender: FDA-Public Use
  Company Number: None

PATIENT
  Sex: Female
  Weight: 23.9 kg

DRUGS (2)
  1. DACTINOMYCIN [Suspect]
     Dosage: 1.04 MG
  2. VINCRISTINE SULFATE [Suspect]
     Dosage: 2.64 MG

REACTIONS (17)
  - LOBAR PNEUMONIA [None]
  - DISSEMINATED INTRAVASCULAR COAGULATION [None]
  - ABDOMINAL PAIN [None]
  - PYREXIA [None]
  - TACHYCARDIA [None]
  - VOMITING [None]
  - THROMBOCYTOPENIA [None]
  - ALANINE AMINOTRANSFERASE INCREASED [None]
  - DIARRHOEA [None]
  - ANAEMIA [None]
  - ASPARTATE AMINOTRANSFERASE INCREASED [None]
  - CAECITIS [None]
  - HYPOPERFUSION [None]
  - NEUTROPHIL COUNT DECREASED [None]
  - DEHYDRATION [None]
  - PLEURAL EFFUSION [None]
  - BLOOD POTASSIUM DECREASED [None]
